FAERS Safety Report 15776382 (Version 1)
Quarter: 2018Q4

REPORT INFORMATION
  Report Type: Spontaneous
  Country: US (occurrence: US)
  Receive Date: 20181231
  Receipt Date: 20181231
  Transmission Date: 20190205
  Serious: Yes (Other)
  Sender: FDA-Public Use
  Company Number: US-TEVA-2018-US-993234

PATIENT
  Age: 4 Year
  Sex: Male

DRUGS (2)
  1. QVAR REDIHALER [Suspect]
     Active Substance: BECLOMETHASONE DIPROPIONATE
     Dosage: 80 MICROGRAM DAILY; DOUBLED TO 80 MCG 2 PUFFS IN THE MORNING AND 2 PUFFS IN THE EVENING
     Dates: start: 20180629
  2. QVAR REDIHALER [Suspect]
     Active Substance: BECLOMETHASONE DIPROPIONATE
     Dosage: 40 MICROGRAM DAILY;
     Dates: start: 20180629

REACTIONS (16)
  - Depressed mood [Not Recovered/Not Resolved]
  - Constipation [Not Recovered/Not Resolved]
  - Rash [Not Recovered/Not Resolved]
  - Bipolar disorder [Not Recovered/Not Resolved]
  - Mania [Not Recovered/Not Resolved]
  - Irritability [Not Recovered/Not Resolved]
  - Feeling abnormal [Not Recovered/Not Resolved]
  - Anxiety [Not Recovered/Not Resolved]
  - Affect lability [Not Recovered/Not Resolved]
  - Anger [Not Recovered/Not Resolved]
  - Condition aggravated [Unknown]
  - Dyskinesia [Not Recovered/Not Resolved]
  - Panic attack [Not Recovered/Not Resolved]
  - Prescription drug used without a prescription [Unknown]
  - Abnormal behaviour [Not Recovered/Not Resolved]
  - Diarrhoea [Not Recovered/Not Resolved]

NARRATIVE: CASE EVENT DATE: 201807
